FAERS Safety Report 25259692 (Version 2)
Quarter: 2025Q2

REPORT INFORMATION
  Report Type: Spontaneous
  Country: US (occurrence: US)
  Receive Date: 20250501
  Receipt Date: 20250510
  Transmission Date: 20250717
  Serious: Yes (Hospitalization, Disabling, Other)
  Sender: AMGEN
  Company Number: US-AMGEN-USASP2025082247

PATIENT
  Age: 55 Year
  Sex: Male

DRUGS (39)
  1. TEPEZZA [Suspect]
     Active Substance: TEPROTUMUMAB-TRBW
     Indication: Toxic goitre
     Dosage: 1100 MILLIGRAM, Q3WK (10.0 MG/KG) (FIRST INFUSION)
     Route: 040
     Dates: start: 20230330
  2. TEPEZZA [Suspect]
     Active Substance: TEPROTUMUMAB-TRBW
     Indication: Endocrine ophthalmopathy
     Dosage: 2200 MILLIGRAM, Q3WK (20.0 MG/KG) (SECOND INFUSION)
     Route: 040
     Dates: start: 20230420
  3. TEPEZZA [Suspect]
     Active Substance: TEPROTUMUMAB-TRBW
     Indication: Graves^ disease
     Dosage: 2160 MILLIGRAM, Q3WK (20.0 MG/KG) (THIRD INFUSION)
     Route: 040
     Dates: start: 20230511
  4. TEPEZZA [Suspect]
     Active Substance: TEPROTUMUMAB-TRBW
     Dosage: 2060 MILLIGRAM, Q3WK (20.0 MG/KG) (FOURTH INFUSION)
     Route: 040
     Dates: start: 20230601
  5. SODIUM CHLORIDE [Concomitant]
     Active Substance: SODIUM CHLORIDE
     Route: 065
  6. FLONASE [Concomitant]
     Active Substance: FLUTICASONE PROPIONATE
     Dosage: UNK, QD
     Route: 045
  7. FLONASE [Concomitant]
     Active Substance: FLUTICASONE PROPIONATE
     Dosage: UNK, QD (ADMINISTER 1 SPRAY)
     Route: 045
     Dates: start: 20230618
  8. INSULIN LISPRO [Concomitant]
     Active Substance: INSULIN LISPRO
     Dosage: UNK UNK, QD (0-8 UNITS) WITH MEALS,HS,0200
     Route: 058
  9. PRILOSEC [Concomitant]
     Active Substance: OMEPRAZOLE MAGNESIUM
     Dosage: 40 MILLIGRAM, QD (EACH DAY BEFORE BREAKFAST)
     Route: 048
  10. PRILOSEC [Concomitant]
     Active Substance: OMEPRAZOLE MAGNESIUM
     Dosage: 40 MILLIGRAM, QD (EACH DAY BEFORE BREAKFAST)
     Route: 048
     Dates: start: 20230619
  11. NICODERM CQ [Concomitant]
     Active Substance: NICOTINE
     Dosage: 14 MILLIGRAM, QD (1 PATCH)
     Route: 062
  12. NICODERM CQ [Concomitant]
     Active Substance: NICOTINE
     Dosage: 14 MILLIGRAM, QD (1 PATCH)
     Route: 062
     Dates: start: 20230620
  13. MYCOSTATIN [Concomitant]
     Active Substance: NYSTATIN
     Dosage: 500000 UNIT, QID (SWISH AND SWALLOW)
     Route: 048
  14. MYCOSTATIN [Concomitant]
     Active Substance: NYSTATIN
     Dosage: 500000 UNIT, QID (SWISH AND SWALLOW)
     Route: 048
     Dates: start: 20230620
  15. HEPARIN [Concomitant]
     Active Substance: HEPARIN SODIUM
     Dosage: 5000 UNIT, Q12H
     Route: 058
  16. INSULIN GLARGINE [Concomitant]
     Active Substance: INSULIN GLARGINE
     Dosage: 10 UNIT, QD (NIGHTLY)
     Route: 058
  17. DEXTROSE [Concomitant]
     Active Substance: DEXTROSE MONOHYDRATE
     Route: 040
  18. DEXTROSE [Concomitant]
     Active Substance: DEXTROSE MONOHYDRATE
     Dosage: 50 MILLILITER, Q15MIN (50% IN WATER INFUSION)
     Route: 040
  19. TYLENOL [Concomitant]
     Active Substance: ACETAMINOPHEN
     Dosage: 650 MILLIGRAM, Q4H (TABLET)
     Route: 048
  20. TYLENOL [Concomitant]
     Active Substance: ACETAMINOPHEN
     Dosage: 650 MILLIGRAM, Q4H (SOLUTION)
     Route: 048
  21. TYLENOL [Concomitant]
     Active Substance: ACETAMINOPHEN
     Dosage: 650 MILLIGRAM, Q4H (SUPPOSITORY)
     Route: 054
  22. GLUCAGON [Concomitant]
     Active Substance: GLUCAGON
     Dosage: 1 MILLIGRAM, Q15MIN
     Route: 030
  23. DEXTROSE [Concomitant]
     Active Substance: DEXTROSE MONOHYDRATE
     Dosage: 15 GRAM, Q15MIN (40 % ORAL GEL)
     Route: 048
  24. DEXTROSE [Concomitant]
     Active Substance: DEXTROSE MONOHYDRATE
     Dosage: 16 GRAM, Q15MIN (CHEWABLE TABLET)
     Route: 048
  25. APRESOLINE HYDROCHLORIDE [Concomitant]
     Active Substance: HYDRALAZINE HYDROCHLORIDE
     Dosage: 10 MILLIGRAM, Q6H
     Route: 040
  26. LANTUS [Concomitant]
     Active Substance: INSULIN GLARGINE
     Route: 058
  27. LANTUS [Concomitant]
     Active Substance: INSULIN GLARGINE
     Route: 058
     Dates: start: 20230619
  28. Semglee [Concomitant]
     Route: 058
  29. Semglee [Concomitant]
     Route: 058
     Dates: start: 20230619
  30. HUMALOG [Concomitant]
     Active Substance: INSULIN LISPRO
     Route: 058
  31. ADMELOG [Concomitant]
     Active Substance: INSULIN LISPRO
     Route: 058
  32. HUMULIN N [Concomitant]
     Active Substance: INSULIN HUMAN
     Dosage: 5 UNIT, QD
     Route: 058
  33. NOVOLIN N [Concomitant]
     Active Substance: INSULIN HUMAN
     Dosage: 5 UNIT, QD
     Route: 058
  34. NARCAN [Concomitant]
     Active Substance: NALOXONE HYDROCHLORIDE
     Route: 040
  35. ZOFRAN [Concomitant]
     Active Substance: ONDANSETRON HYDROCHLORIDE
     Dosage: 4 MILLIGRAM, Q8H (INJECTION)
     Route: 040
  36. ZOFRAN [Concomitant]
     Active Substance: ONDANSETRON HYDROCHLORIDE
     Dosage: 4 MILLIGRAM, Q8H (DISINTEGRATING TABLET)
     Route: 048
  37. ZOFRAN [Concomitant]
     Active Substance: ONDANSETRON HYDROCHLORIDE
     Dosage: 4 MILLIGRAM, Q8H (INJECTION)
     Route: 030
  38. PERCOCET [Concomitant]
     Active Substance: ACETAMINOPHEN\OXYCODONE HYDROCHLORIDE
     Dosage: 330 MILLIGRAM, Q4H (1 TABLET) (5-325 MG)
  39. SENOKOT [Concomitant]
     Active Substance: SENNOSIDES
     Route: 048

REACTIONS (39)
  - Hyperglycaemia [Not Recovered/Not Resolved]
  - Acute myocardial infarction [Not Recovered/Not Resolved]
  - Coronary artery disease [Unknown]
  - Dizziness [Unknown]
  - Presyncope [Unknown]
  - Hyponatraemia [Not Recovered/Not Resolved]
  - Asthenia [Unknown]
  - Diabetic ketoacidosis [Recovered/Resolved]
  - Deafness permanent [Not Recovered/Not Resolved]
  - Endocrine ophthalmopathy [Unknown]
  - Graves^ disease [Unknown]
  - Blood pressure increased [Unknown]
  - Sinus bradycardia [Unknown]
  - Malnutrition [Unknown]
  - Electrolyte imbalance [Unknown]
  - Hyperchlorhydria [Unknown]
  - Obesity [Unknown]
  - Weight decreased [Unknown]
  - Oropharyngeal pain [Unknown]
  - Candida infection [Unknown]
  - White blood cell count increased [Unknown]
  - Red blood cell count decreased [Unknown]
  - Haemoglobin decreased [Unknown]
  - Haematocrit decreased [Unknown]
  - Mean cell haemoglobin concentration increased [Unknown]
  - Mean platelet volume increased [Unknown]
  - Neutrophil count increased [Unknown]
  - Monocyte count increased [Unknown]
  - Blood calcium decreased [Unknown]
  - Blood chloride decreased [Unknown]
  - Protein total decreased [Unknown]
  - Anion gap increased [Unknown]
  - Glycosuria [Unknown]
  - Pain [Unknown]
  - Emotional distress [Unknown]
  - Anxiety [Unknown]
  - Discomfort [Unknown]
  - Tinnitus [Not Recovered/Not Resolved]
  - Product use complaint [Unknown]

NARRATIVE: CASE EVENT DATE: 20230330
